FAERS Safety Report 8511425-7 (Version None)
Quarter: 2012Q3

REPORT INFORMATION
  Report Type: 
  Country: None (occurrence: None)
  Receive Date: 20120716
  Receipt Date: 20120710
  Transmission Date: 20120928
  Serious: No
  Sender: FDA-Public Use
  Company Number: US-BAYER-2012-069910

PATIENT
  Age: 76 Year
  Sex: Male
  Weight: 66 kg

DRUGS (7)
  1. CHROMIUM PICOLINATE [Concomitant]
  2. ASPIRIN [Interacting]
     Indication: ISCHAEMIC HEART DISEASE PROPHYLAXIS
     Dosage: UNK
     Route: 048
     Dates: start: 19820101
  3. VITAMIN D [Concomitant]
  4. MAGNESIUM SULFATE [Concomitant]
  5. MULTIVITAMIN [Concomitant]
  6. POTASSIUM CHLORIDE [Concomitant]
  7. ALEVE (CAPLET) [Suspect]
     Indication: ANALGESIC THERAPY
     Dosage: 1 DF, BID
     Route: 048
     Dates: start: 20120626

REACTIONS (2)
  - CONTUSION [None]
  - RASH MACULAR [None]
